FAERS Safety Report 9334835 (Version 2)
Quarter: 2014Q3

REPORT INFORMATION
  Report Type: Spontaneous
  Country: US (occurrence: US)
  Receive Date: 20130606
  Receipt Date: 20140818
  Transmission Date: 20150326
  Serious: Yes (Hospitalization, Other)
  Sender: FDA-Public Use
  Company Number: US-009507513-1305USA018031

PATIENT
  Sex: Female
  Weight: 76.64 kg

DRUGS (2)
  1. NUVARING [Suspect]
     Active Substance: ETHINYL ESTRADIOL\ETONOGESTREL
     Indication: MENORRHAGIA
  2. NUVARING [Suspect]
     Active Substance: ETHINYL ESTRADIOL\ETONOGESTREL
     Indication: DYSMENORRHOEA
     Dosage: 0.12-0.015MG/24 HR, 1 RING 3 WEEKS/MONTH
     Route: 067
     Dates: start: 200910, end: 20110606

REACTIONS (16)
  - Diarrhoea [Unknown]
  - Insomnia [Unknown]
  - Major depression [Unknown]
  - Depression [Unknown]
  - Pulmonary embolism [Unknown]
  - Radius fracture [Unknown]
  - Fibrocystic breast disease [Unknown]
  - Rhinitis allergic [Unknown]
  - Bipolar disorder [Unknown]
  - Urinary tract infection [Unknown]
  - Migraine [Unknown]
  - Hot flush [Unknown]
  - Anxiety disorder [Unknown]
  - Vitamin D deficiency [Unknown]
  - Off label use [Unknown]
  - Abdominal pain [Unknown]

NARRATIVE: CASE EVENT DATE: 20110609
